FAERS Safety Report 18054204 (Version 1)
Quarter: 2020Q3

REPORT INFORMATION
  Report Type: Spontaneous
  Country: US (occurrence: US)
  Receive Date: 20200721
  Receipt Date: 20200721
  Transmission Date: 20201103
  Serious: No
  Sender: FDA-Public Use
  Company Number: None

PATIENT
  Age: 35 Year
  Sex: Female
  Weight: 57.6 kg

DRUGS (3)
  1. MULTI?VITAMINS [Concomitant]
  2. PREMIUM DISINFECTING WIPES 75% ALCOHOL HAND WIPES [Suspect]
     Active Substance: ALCOHOL
     Indication: COVID-19 PROPHYLAXIS
     Dosage: ?          QUANTITY:50 COUNTS;?
  3. OMEGA 3 [Concomitant]
     Active Substance: OMEGA-3 FATTY ACIDS

REACTIONS (4)
  - Product label counterfeit [None]
  - Application site rash [None]
  - Rash [None]
  - Application site erythema [None]
